FAERS Safety Report 5705477-7 (Version None)
Quarter: 2008Q2

REPORT INFORMATION
  Report Type: 
  Country: None (occurrence: None)
  Receive Date: 20080411
  Receipt Date: 20080328
  Transmission Date: 20081010
  Serious: Yes (Other)
  Sender: FDA-Public Use
  Company Number: M7001-02899-SPO-US

PATIENT
  Age: 69 Year
  Sex: Female

DRUGS (1)
  1. TARGRETIN [Suspect]
     Indication: MYCOSIS FUNGOIDES
     Dosage: 300 MG, ORAL
     Route: 048

REACTIONS (2)
  - LYMPHOMA [None]
  - PULMONARY MASS [None]
